FAERS Safety Report 10346047 (Version 2)
Quarter: 2014Q3

REPORT INFORMATION
  Report Type: Spontaneous
  Country: IT (occurrence: IT)
  Receive Date: 20140728
  Receipt Date: 20140808
  Transmission Date: 20150326
  Serious: Yes (Other)
  Sender: FDA-Public Use
  Company Number: IT-FRI-1000069340

PATIENT
  Age: 77 Year
  Sex: Female

DRUGS (6)
  1. COUMADIN [Concomitant]
     Active Substance: WARFARIN SODIUM
  2. LANOXIN [Concomitant]
     Active Substance: DIGOXIN
  3. HYDROCHLOROTHIAZIDE\VALSARTAN [Suspect]
     Active Substance: HYDROCHLOROTHIAZIDE\VALSARTAN
     Dosage: 320/12.5 MG
     Dates: start: 20140101
  4. NEBIVOLOL [Suspect]
     Active Substance: NEBIVOLOL
     Dates: start: 20140101
  5. IPERTEN [Suspect]
     Active Substance: MANIDIPINE
     Dates: start: 20140101
  6. SIMVASTATINA [Concomitant]
     Active Substance: SIMVASTATIN

REACTIONS (1)
  - Hypotension [Recovering/Resolving]

NARRATIVE: CASE EVENT DATE: 20140613
